FAERS Safety Report 12943379 (Version 1)
Quarter: 2016Q4

REPORT INFORMATION
  Report Type: Spontaneous
  Country: RU (occurrence: RU)
  Receive Date: 20161115
  Receipt Date: 20161115
  Transmission Date: 20170207
  Serious: Yes (Hospitalization, Other)
  Sender: FDA-Public Use
  Company Number: RU-GLAXOSMITHKLINE-RU2016GSK167694

PATIENT
  Sex: Male

DRUGS (1)
  1. DUODART [Suspect]
     Active Substance: DUTASTERIDE\TAMSULOSIN
     Indication: PROSTATIC ADENOMA
     Dosage: UNK
     Dates: start: 201607

REACTIONS (1)
  - Urinary retention [Recovered/Resolved]

NARRATIVE: CASE EVENT DATE: 2016
